FAERS Safety Report 25382298 (Version 1)
Quarter: 2025Q2

REPORT INFORMATION
  Report Type: Spontaneous
  Country: JP (occurrence: JP)
  Receive Date: 20250601
  Receipt Date: 20250601
  Transmission Date: 20250716
  Serious: Yes (Other)
  Sender: ESKAYEF PHARMACEUTICALS LIMITED
  Company Number: JP-SKF-000167

PATIENT
  Sex: Female

DRUGS (4)
  1. ACETAMINOPHEN [Concomitant]
     Active Substance: ACETAMINOPHEN
     Indication: Back pain
     Route: 065
  2. QUETIAPINE [Concomitant]
     Active Substance: QUETIAPINE
     Indication: Insomnia
     Route: 065
  3. MIROGABALIN [Suspect]
     Active Substance: MIROGABALIN
     Indication: Neuralgia
     Route: 065
  4. PREGABALIN [Suspect]
     Active Substance: PREGABALIN
     Indication: Neuralgia
     Route: 065

REACTIONS (6)
  - Substance-induced psychotic disorder [Recovered/Resolved]
  - Hallucination [Recovered/Resolved]
  - Irritability [Recovered/Resolved]
  - Cognitive disorder [Recovered/Resolved]
  - Symptom recurrence [Recovered/Resolved]
  - Delusion [Recovered/Resolved]
